FAERS Safety Report 24197932 (Version 1)
Quarter: 2024Q3

REPORT INFORMATION
  Report Type: Spontaneous
  Country: JP (occurrence: JP)
  Receive Date: 20240812
  Receipt Date: 20240812
  Transmission Date: 20241017
  Serious: Yes (Other)
  Sender: SANDOZ
  Company Number: JP-SANDOZ-SDZ2024JP071275

PATIENT
  Age: 65 Year
  Sex: Female

DRUGS (1)
  1. NELARABINE [Suspect]
     Active Substance: NELARABINE
     Indication: Lymphocytic leukaemia
     Dosage: EVERY OTHER DAY FOR 3 DAYS.
     Route: 042
     Dates: start: 20240620, end: 20240625

REACTIONS (3)
  - Spinal cord disorder [Unknown]
  - Diplegia [Unknown]
  - Sensory disturbance [Unknown]
